FAERS Safety Report 5148194-7 (Version None)
Quarter: 2006Q4

REPORT INFORMATION
  Report Type: 
  Country: None (occurrence: None)
  Receive Date: 20061110
  Receipt Date: 20060306
  Transmission Date: 20070319
  Serious: Yes (Hospitalization, Other)
  Sender: FDA-Public Use
  Company Number: US-ELI_LILLY_AND_COMPANY-US200605005829

PATIENT
  Age: 53 Year
  Sex: Female
  Weight: 86.621 kg

DRUGS (2)
  1. ZYPREXA [Suspect]
     Dosage: 15 MG, UNK
     Dates: start: 19970601, end: 20051201
  2. RISPERIDONE [Concomitant]
     Dates: start: 19970101

REACTIONS (6)
  - BLOOD CHOLESTEROL ABNORMAL [None]
  - DIABETES MELLITUS [None]
  - DIABETIC KETOACIDOSIS [None]
  - HYPERTENSION [None]
  - METABOLIC DISORDER [None]
  - MYOCARDIAL INFARCTION [None]
